FAERS Safety Report 10686871 (Version 1)
Quarter: 2015Q1

REPORT INFORMATION
  Report Type: Spontaneous
  Country: IT (occurrence: IT)
  Receive Date: 20150102
  Receipt Date: 20150102
  Transmission Date: 20150720
  Serious: Yes (Hospitalization)
  Sender: FDA-Public Use
  Company Number: IT-JNJFOC-20141217530

PATIENT
  Age: 1 Month
  Sex: Male

DRUGS (1)
  1. INFANTS MYLICON [Suspect]
     Active Substance: DIMETHICONE
     Indication: ABDOMINAL PAIN
     Route: 065

REACTIONS (1)
  - Erythema [Recovering/Resolving]

NARRATIVE: CASE EVENT DATE: 20140418
